FAERS Safety Report 20348776 (Version 3)
Quarter: 2022Q2

REPORT INFORMATION
  Report Type: Report from Study
  Country: US (occurrence: US)
  Receive Date: 20220119
  Receipt Date: 20220404
  Transmission Date: 20220721
  Serious: Yes (Hospitalization, Other)
  Sender: FDA-Public Use
  Company Number: US-ABBVIE-21K-163-4193425-00

PATIENT
  Age: 49 Year
  Sex: Male

DRUGS (5)
  1. HUMIRA [Suspect]
     Active Substance: ADALIMUMAB
     Indication: Psoriasis
     Dosage: CITRATE FREE?FIRST DOSE
     Route: 058
     Dates: start: 20211117, end: 20211117
  2. HUMIRA [Suspect]
     Active Substance: ADALIMUMAB
     Dosage: CITRATE FREE?SECOND DOSE
     Route: 058
     Dates: start: 20211126, end: 20211126
  3. HUMIRA [Suspect]
     Active Substance: ADALIMUMAB
     Dosage: CITRATE FREE
     Route: 058
  4. MODERNA COVID-19 VACCINE [Concomitant]
     Active Substance: ELASOMERAN
     Indication: COVID-19 immunisation
     Route: 030
     Dates: start: 20210401, end: 20210401
  5. MODERNA COVID-19 VACCINE [Concomitant]
     Active Substance: ELASOMERAN
     Route: 030
     Dates: start: 20210501, end: 20210501

REACTIONS (14)
  - Blood pressure decreased [Unknown]
  - Incoherent [Unknown]
  - Dysphonia [Unknown]
  - Hallucination [Unknown]
  - Somnolence [Unknown]
  - Memory impairment [Unknown]
  - Malaise [Unknown]
  - Depression [Unknown]
  - Tinnitus [Unknown]
  - Pulmonary sepsis [Unknown]
  - Confusional state [Unknown]
  - Pneumonia [Unknown]
  - Hypersomnia [Unknown]
  - Peripheral swelling [Unknown]

NARRATIVE: CASE EVENT DATE: 20211201
